FAERS Safety Report 11804222 (Version 2)
Quarter: 2016Q1

REPORT INFORMATION
  Report Type: Spontaneous
  Country: US (occurrence: US)
  Receive Date: 20151204
  Receipt Date: 20160129
  Transmission Date: 20160525
  Serious: No
  Sender: FDA-Public Use
  Company Number: US-AKRIMAX-TIR-2015-0309

PATIENT
  Age: 70 Year
  Sex: Female
  Weight: 80.36 kg

DRUGS (7)
  1. GLIMEPIRIDE. [Suspect]
     Active Substance: GLIMEPIRIDE
     Indication: DIABETES MELLITUS
     Dosage: DAILY
     Dates: start: 201412, end: 20151014
  2. TIROSINT [Suspect]
     Active Substance: LEVOTHYROXINE SODIUM
     Indication: BASEDOW^S DISEASE
     Dosage: ONCE DAILY
     Route: 048
     Dates: start: 2014, end: 201505
  3. TIROSINT [Suspect]
     Active Substance: LEVOTHYROXINE SODIUM
     Indication: BASEDOW^S DISEASE
  4. TIROSINT [Suspect]
     Active Substance: LEVOTHYROXINE SODIUM
     Indication: RADIOACTIVE IODINE THERAPY
  5. TIROSINT [Suspect]
     Active Substance: LEVOTHYROXINE SODIUM
     Indication: HYPOTHYROIDISM
     Route: 048
     Dates: start: 201208
  6. TIROSINT [Suspect]
     Active Substance: LEVOTHYROXINE SODIUM
     Indication: RADIOACTIVE IODINE THERAPY
     Dosage: ONCE DAILY
     Route: 048
     Dates: start: 201505, end: 201507
  7. TIROSINT [Suspect]
     Active Substance: LEVOTHYROXINE SODIUM
     Indication: HYPOTHYROIDISM
     Dosage: ONCE DAILY
     Route: 048
     Dates: start: 201507

REACTIONS (9)
  - Onychomadesis [Unknown]
  - Weight decreased [Unknown]
  - Diabetes mellitus [Unknown]
  - Blister [Unknown]
  - Onychoclasis [Unknown]
  - Lichen planus [Unknown]
  - Platelet count decreased [Unknown]
  - Drug level above therapeutic [Unknown]
  - Rash [Unknown]

NARRATIVE: CASE EVENT DATE: 201412
